FAERS Safety Report 5224522-9 (Version None)
Quarter: 2007Q1

REPORT INFORMATION
  Report Type: 
  Country: None (occurrence: None)
  Receive Date: 20070130
  Receipt Date: 20070118
  Transmission Date: 20070707
  Serious: Yes (Other)
  Sender: FDA-Public Use
  Company Number: US-PFIZER INC-2007005835

PATIENT
  Sex: Female
  Weight: 47.2 kg

DRUGS (4)
  1. CLEOCIN HCL CAPSULE [Suspect]
     Indication: PROPHYLAXIS
  2. VITAMIN CAP [Concomitant]
  3. FISH OIL [Concomitant]
  4. AMOXICILLIN [Concomitant]

REACTIONS (1)
  - RECALL PHENOMENON [None]
